FAERS Safety Report 7574066-4 (Version None)
Quarter: 2011Q2

REPORT INFORMATION
  Report Type: 
  Country: None (occurrence: None)
  Receive Date: 20110627
  Receipt Date: 20110616
  Transmission Date: 20111010
  Serious: Yes (Other)
  Sender: FDA-Public Use
  Company Number: DE-CEPHALON-2011003317

PATIENT
  Age: 77 Year
  Sex: Female

DRUGS (4)
  1. RITUXIMAB [Suspect]
     Indication: CHRONIC LYMPHOCYTIC LEUKAEMIA
     Route: 042
     Dates: start: 20110119
  2. BENDAMUSTINE HCL [Suspect]
     Route: 042
     Dates: start: 20110405
  3. BENDAMUSTINE HCL [Suspect]
     Indication: CHRONIC LYMPHOCYTIC LEUKAEMIA
     Route: 042
     Dates: start: 20110120
  4. RITUXIMAB [Suspect]
     Route: 042
     Dates: start: 20110404

REACTIONS (2)
  - GENERAL PHYSICAL HEALTH DETERIORATION [None]
  - THROMBOSIS [None]
